FAERS Safety Report 5652357-1 (Version None)
Quarter: 2008Q1

REPORT INFORMATION
  Report Type: 
  Country: None (occurrence: None)
  Receive Date: 20080305
  Receipt Date: 20080305
  Transmission Date: 20080703
  Serious: No
  Sender: FDA-Public Use
  Company Number: None

PATIENT
  Age: 76 Year
  Sex: Male
  Weight: 39 kg

DRUGS (2)
  1. IRON DEXTRAN [Suspect]
     Indication: MALABSORPTION
     Dosage: 930MG/250ML NS IV OVER 2 HOURS
     Route: 042
     Dates: start: 20080226
  2. IRON DEXTRAN [Suspect]

REACTIONS (4)
  - BLOOD PRESSURE DECREASED [None]
  - DYSPNOEA [None]
  - INFUSION RELATED REACTION [None]
  - PALLOR [None]
